FAERS Safety Report 7503579-6 (Version None)
Quarter: 2011Q2

REPORT INFORMATION
  Report Type: 
  Country: None (occurrence: None)
  Receive Date: 20110524
  Receipt Date: 20110524
  Transmission Date: 20111010
  Serious: Yes (Other)
  Sender: FDA-Public Use
  Company Number: None

PATIENT
  Age: 29 Year
  Sex: Male

DRUGS (6)
  1. LEVETIRACETAM [Concomitant]
  2. ZYPREXA [Suspect]
     Indication: SCHIZOPHRENIA, PARANOID TYPE
     Dosage: 20 MG BEDTIME PO
     Route: 048
     Dates: start: 20110210, end: 20110322
  3. DIVALPROEX EXTENDED-RELEASE [Concomitant]
  4. FISH OIL CAPS [Concomitant]
  5. FENOFIBRATE [Suspect]
     Indication: HYPERTRIGLYCERIDAEMIA
     Dosage: 200 MG BEDTIME PO
     Route: 048
     Dates: start: 20110322, end: 20110422
  6. ARIPIPRAZOLE [Concomitant]

REACTIONS (5)
  - WEIGHT INCREASED [None]
  - ALANINE AMINOTRANSFERASE INCREASED [None]
  - BLOOD TRIGLYCERIDES INCREASED [None]
  - ASPARTATE AMINOTRANSFERASE INCREASED [None]
  - BLOOD BILIRUBIN INCREASED [None]
